FAERS Safety Report 6761589-0 (Version None)
Quarter: 2010Q2

REPORT INFORMATION
  Report Type: 
  Country: None (occurrence: None)
  Receive Date: 20100609
  Receipt Date: 20100601
  Transmission Date: 20101027
  Serious: No
  Sender: FDA-Public Use
  Company Number: US-BIOGENIDEC-2010BI018370

PATIENT
  Age: 38 Year
  Sex: Female

DRUGS (2)
  1. TYSABRI [Suspect]
     Indication: MULTIPLE SCLEROSIS
     Route: 042
     Dates: start: 20070419, end: 20080319
  2. TYSABRI [Suspect]
     Route: 042
     Dates: start: 20090914

REACTIONS (2)
  - INFUSION SITE PAIN [None]
  - POOR VENOUS ACCESS [None]
